FAERS Safety Report 5222057-0 (Version None)
Quarter: 2007Q1

REPORT INFORMATION
  Report Type: 
  Country: None (occurrence: None)
  Receive Date: 20070129
  Receipt Date: 20060503
  Transmission Date: 20070707
  Serious: Yes (Other)
  Sender: FDA-Public Use
  Company Number: US-GLAXOSMITHKLINE-A0604207A

PATIENT
  Age: 59 Year
  Sex: Female

DRUGS (8)
  1. BUPROPION HYDROCHLORIDE [Suspect]
     Dosage: 150MG PER DAY
     Route: 048
     Dates: start: 19990101
  2. TEGRETOL [Concomitant]
  3. DILANTIN [Concomitant]
  4. MIRAPEX [Concomitant]
  5. GLUCOPHAGE [Concomitant]
  6. ALTACE [Concomitant]
  7. FOSAMAX [Concomitant]
  8. CELEBREX [Concomitant]

REACTIONS (2)
  - CONVULSION [None]
  - GRAND MAL CONVULSION [None]
